FAERS Safety Report 5839997-1 (Version None)
Quarter: 2008Q3

REPORT INFORMATION
  Report Type: 
  Country: None (occurrence: None)
  Receive Date: 20080811
  Receipt Date: 20080730
  Transmission Date: 20090109
  Serious: Yes (Life-Threatening, Hospitalization)
  Sender: FDA-Public Use
  Company Number: FR-NOVOPROD-278032

PATIENT
  Age: 88 Year
  Sex: Female
  Weight: 88 kg

DRUGS (2)
  1. NOVONORM [Suspect]
     Indication: DIABETES MELLITUS
     Dates: end: 20080730
  2. METFORMIN HCL [Concomitant]
     Indication: DRUG USE FOR UNKNOWN INDICATION

REACTIONS (1)
  - SHOCK HYPOGLYCAEMIC [None]
